FAERS Safety Report 7358491-2 (Version None)
Quarter: 2011Q1

REPORT INFORMATION
  Report Type: 
  Country: None (occurrence: None)
  Receive Date: 20110317
  Receipt Date: 20110303
  Transmission Date: 20110831
  Serious: Yes (Death)
  Sender: FDA-Public Use
  Company Number: TR-WATSON-2011-03168

PATIENT

DRUGS (1)
  1. CRINONE (WATSON LABORATORIES) [Suspect]
     Indication: DRUG EXPOSURE DURING PREGNANCY
     Dosage: UNK MG, UNKNOWN
     Route: 064

REACTIONS (2)
  - DEATH NEONATAL [None]
  - MATERNAL DRUGS AFFECTING FOETUS [None]
